FAERS Safety Report 22995412 (Version 3)
Quarter: 2024Q1

REPORT INFORMATION
  Report Type: Spontaneous
  Country: AU (occurrence: None)
  Receive Date: 20230927
  Receipt Date: 20240319
  Transmission Date: 20240409
  Serious: Yes (Hospitalization, Other)
  Sender: FDA-Public Use
  Company Number: 2023A214614

PATIENT
  Age: 50 Year
  Sex: Female

DRUGS (8)
  1. ROSUVASTATIN [Interacting]
     Active Substance: ROSUVASTATIN
     Indication: Cerebrovascular accident
     Route: 048
  2. RIBOCICLIB [Interacting]
     Active Substance: RIBOCICLIB
     Indication: Breast cancer female
     Dosage: 200 MG DAILY 3 WEEKS ON 1 WEEK OFF
  3. ANASTROZOLE [Concomitant]
     Active Substance: ANASTROZOLE
     Indication: Breast cancer female
     Route: 048
  4. ESOMEPRAZOLE [Concomitant]
     Active Substance: ESOMEPRAZOLE
  5. IRBESARTAN [Concomitant]
     Active Substance: IRBESARTAN
  6. ESCITALOPRAM [Concomitant]
     Active Substance: ESCITALOPRAM OXALATE
  7. PREGABALIN [Concomitant]
     Active Substance: PREGABALIN
  8. NALOXONE HYDROCHLORIDE\OXYCODONE HYDROCHLORIDE [Concomitant]
     Active Substance: NALOXONE HYDROCHLORIDE\OXYCODONE HYDROCHLORIDE
     Dosage: 30/15 MG MANE, 40/20 MG NOCTE

REACTIONS (4)
  - Acute kidney injury [Recovered/Resolved]
  - Potentiating drug interaction [Recovered/Resolved]
  - Rhabdomyolysis [Recovered/Resolved]
  - Glomerular filtration rate decreased [Recovered/Resolved]
